FAERS Safety Report 8144528-X (Version None)
Quarter: 2012Q1

REPORT INFORMATION
  Report Type: 
  Country: None (occurrence: None)
  Receive Date: 20120217
  Receipt Date: 20120209
  Transmission Date: 20120608
  Serious: Yes (Life-Threatening, Hospitalization)
  Sender: FDA-Public Use
  Company Number: FR-BRISTOL-MYERS SQUIBB COMPANY-15197619

PATIENT
  Age: 37 Year
  Sex: Male
  Weight: 130 kg

DRUGS (3)
  1. SYMBICORT [Concomitant]
     Indication: ASTHMA
     Dosage: TURBUHALER
     Route: 055
  2. SPRYCEL [Suspect]
     Indication: CHRONIC MYELOID LEUKAEMIA
     Dates: start: 20071001, end: 20100401
  3. VENTOLIN [Concomitant]
     Indication: ASTHMA
     Route: 055

REACTIONS (7)
  - PULMONARY ARTERIAL HYPERTENSION [None]
  - WEIGHT INCREASED [None]
  - GENERALISED OEDEMA [None]
  - ASCITES [None]
  - PLEURAL EFFUSION [None]
  - RESPIRATORY ACIDOSIS [None]
  - HEPATOMEGALY [None]
